FAERS Safety Report 5930284-X (Version None)
Quarter: 2008Q4

REPORT INFORMATION
  Report Type: 
  Country: None (occurrence: None)
  Receive Date: 20081024
  Receipt Date: 20081014
  Transmission Date: 20090506
  Serious: Yes (Other)
  Sender: FDA-Public Use
  Company Number: US-PFIZER INC-2008088135

PATIENT
  Sex: Male
  Weight: 89.8 kg

DRUGS (3)
  1. SUTENT [Suspect]
     Indication: RENAL CELL CARCINOMA
     Route: 048
     Dates: start: 20080909, end: 20080928
  2. LEVOXYL [Concomitant]
     Route: 048
  3. LEXAPRO [Concomitant]
     Route: 048
     Dates: start: 20050101

REACTIONS (22)
  - ABDOMINAL DISTENSION [None]
  - AGEUSIA [None]
  - ANOREXIA [None]
  - BLOOD CREATININE ABNORMAL [None]
  - CHROMATURIA [None]
  - CONSTIPATION [None]
  - COUGH [None]
  - DRUG INTOLERANCE [None]
  - DYSPEPSIA [None]
  - ERYTHEMA [None]
  - FATIGUE [None]
  - GLOSSODYNIA [None]
  - MYOPATHY [None]
  - NAUSEA [None]
  - OEDEMA PERIPHERAL [None]
  - ORAL PAIN [None]
  - PAIN IN EXTREMITY [None]
  - PLATELET COUNT DECREASED [None]
  - RASH [None]
  - RED BLOOD CELL COUNT DECREASED [None]
  - URINE OUTPUT DECREASED [None]
  - WHITE BLOOD CELL COUNT DECREASED [None]
